FAERS Safety Report 11716894 (Version 1)
Quarter: 2015Q4

REPORT INFORMATION
  Report Type: Spontaneous
  Country: US (occurrence: US)
  Receive Date: 20151109
  Receipt Date: 20151109
  Transmission Date: 20160304
  Serious: No
  Sender: FDA-Public Use
  Company Number: US-APOPHARMA USA, INC.-2013AP006243

PATIENT
  Age: 72 Year
  Sex: Female
  Weight: 78 kg

DRUGS (5)
  1. FOLIC ACID. [Concomitant]
     Active Substance: FOLIC ACID
     Route: 048
  2. AMLODIPINE [Concomitant]
     Active Substance: AMLODIPINE BESYLATE
     Indication: HYPERTENSION
     Route: 048
  3. FERRIPROX [Suspect]
     Active Substance: DEFERIPRONE
     Indication: SICKLE CELL ANAEMIA
     Route: 048
     Dates: start: 20130528, end: 20130531
  4. FERRIPROX [Suspect]
     Active Substance: DEFERIPRONE
     Indication: HAEMOCHROMATOSIS
  5. POTASSIUM [Concomitant]
     Active Substance: POTASSIUM

REACTIONS (1)
  - Abdominal pain upper [Recovered/Resolved]

NARRATIVE: CASE EVENT DATE: 20130528
